FAERS Safety Report 9166221 (Version 2)
Quarter: 2013Q1

REPORT INFORMATION
  Report Type: Spontaneous
  Country: US (occurrence: US)
  Receive Date: 20130315
  Receipt Date: 20130327
  Transmission Date: 20140127
  Serious: No
  Sender: FDA-Public Use
  Company Number: US-009507513-1303USA007250

PATIENT
  Age: 26 Year
  Sex: Female
  Weight: 66.21 kg

DRUGS (3)
  1. NEXPLANON [Suspect]
     Indication: CONTRACEPTION
     Dosage: INSERT ONCE EVERY THREE YEARS
     Route: 059
     Dates: start: 20130304
  2. METRONIDAZOLE [Concomitant]
  3. LEVOXIN [Concomitant]

REACTIONS (4)
  - Food craving [Not Recovered/Not Resolved]
  - Weight increased [Not Recovered/Not Resolved]
  - Somnolence [Not Recovered/Not Resolved]
  - Metrorrhagia [Not Recovered/Not Resolved]
